FAERS Safety Report 9364501 (Version 2)
Quarter: 2013Q3

REPORT INFORMATION
  Report Type: Spontaneous
  Country: SY (occurrence: SY)
  Receive Date: 20130624
  Receipt Date: 20130823
  Transmission Date: 20140515
  Serious: Yes (Life-Threatening, Disabling)
  Sender: FDA-Public Use
  Company Number: SY-ASTRAZENECA-2013SE47882

PATIENT
  Sex: Male
  Weight: 90 kg

DRUGS (6)
  1. BRILINTA [Suspect]
     Indication: CORONARY ANGIOPLASTY
     Route: 048
  2. ASPIRIN [Concomitant]
  3. RAMIPRIL [Concomitant]
  4. ATORVASTATIN [Concomitant]
  5. LASIX [Concomitant]
  6. CARVEDILOL [Concomitant]

REACTIONS (1)
  - Thrombosis in device [Recovered/Resolved]
